FAERS Safety Report 7146339-0 (Version None)
Quarter: 2010Q4

REPORT INFORMATION
  Report Type: 
  Country: None (occurrence: None)
  Receive Date: 20101208
  Receipt Date: 20101202
  Transmission Date: 20110411
  Serious: Yes (Other)
  Sender: FDA-Public Use
  Company Number: US-AMGEN-USASP2010006898

PATIENT

DRUGS (7)
  1. NPLATE [Suspect]
     Indication: IDIOPATHIC THROMBOCYTOPENIC PURPURA
     Dosage: 572.67 A?G, UNK
     Dates: start: 20100112, end: 20100601
  2. ACETAMINOPHEN AND HYDROCODONE BITARTRATE [Concomitant]
  3. TYLENOL-500 [Concomitant]
  4. BONIVA [Concomitant]
  5. MULTI-VITAMINS [Concomitant]
  6. LEVOTHYROXINE SODIUM [Concomitant]
     Dosage: 88 A?G, QD
  7. IMURAN [Concomitant]
     Indication: RHEUMATOID ARTHRITIS
     Dosage: UNK
     Dates: start: 20100501

REACTIONS (6)
  - ARTHRALGIA [None]
  - CHOLECYSTECTOMY [None]
  - FATIGUE [None]
  - JAUNDICE [None]
  - THERAPEUTIC RESPONSE DECREASED [None]
  - THROMBOCYTOPENIA [None]
